FAERS Safety Report 7607371-3 (Version None)
Quarter: 2011Q3

REPORT INFORMATION
  Report Type: 
  Country: None (occurrence: None)
  Receive Date: 20110713
  Receipt Date: 20110630
  Transmission Date: 20111222
  Serious: Yes (Other)
  Sender: FDA-Public Use
  Company Number: GB-MYLANLABS-2011S1013668

PATIENT
  Age: 51 Year
  Sex: Female

DRUGS (10)
  1. PREDNISOLONE [Suspect]
     Indication: RENAL TRANSPLANT
  2. PREDNISOLONE [Suspect]
     Indication: IMMUNOSUPPRESSION
  3. MYCOPHENOLATE MEFETIL [Suspect]
     Indication: RENAL TRANSPLANT
     Dates: start: 20040701
  4. MYCOPHENOLATE MEFETIL [Suspect]
     Indication: IMMUNOSUPPRESSION
     Dates: start: 20040701
  5. AZATHIOPRINE [Suspect]
     Indication: RENAL TRANSPLANT
  6. ANTI-THYMOCYTE GLOBULIN RABBIT NOS [Suspect]
     Indication: IMMUNOSUPPRESSION
  7. AZATHIOPRINE [Suspect]
     Indication: IMMUNOSUPPRESSION
  8. TACROLIMUS [Suspect]
     Indication: RENAL TRANSPLANT
  9. TACROLIMUS [Suspect]
     Indication: IMMUNOSUPPRESSION
  10. ANTI-THYMOCYTE GLOBULIN RABBIT NOS [Suspect]
     Indication: RENAL TRANSPLANT

REACTIONS (2)
  - BRONCHIECTASIS [None]
  - HYPOGAMMAGLOBULINAEMIA [None]
